FAERS Safety Report 6437679-9 (Version None)
Quarter: 2009Q4

REPORT INFORMATION
  Report Type: 
  Country: None (occurrence: None)
  Receive Date: 20091112
  Receipt Date: 20091104
  Transmission Date: 20100525
  Serious: Yes (Other)
  Sender: FDA-Public Use
  Company Number: B0601756A

PATIENT
  Age: 68 Year
  Sex: Male
  Weight: 70 kg

DRUGS (6)
  1. ARIXTRA [Suspect]
     Indication: THROMBOSIS PROPHYLAXIS
     Dosage: 7.5MG PER DAY
     Dates: start: 20090422, end: 20090526
  2. DOLIPRANE [Concomitant]
     Indication: PAIN
     Dosage: 1000MG THREE TIMES PER DAY
     Route: 048
  3. MORPHINE SULFATE [Concomitant]
     Indication: PAIN
     Dosage: 30MG TWICE PER DAY
     Route: 048
  4. VITAMIN B COMPLEX CAP [Concomitant]
     Indication: ALCOHOLISM
     Route: 048
     Dates: end: 20090505
  5. CORDARONE [Concomitant]
     Dosage: 200MG PER DAY
     Route: 048
     Dates: end: 20090505
  6. CORTANCYL [Concomitant]
     Dosage: 20MG PER DAY
     Route: 048

REACTIONS (6)
  - ANAEMIA [None]
  - HAEMATOCRIT DECREASED [None]
  - HAEMATOMA [None]
  - INCORRECT DOSE ADMINISTERED [None]
  - INCORRECT DRUG ADMINISTRATION DURATION [None]
  - PLATELET COUNT DECREASED [None]
